FAERS Safety Report 17887808 (Version 2)
Quarter: 2020Q2

REPORT INFORMATION
  Report Type: Spontaneous
  Country: JP (occurrence: JP)
  Receive Date: 20200611
  Receipt Date: 20200616
  Transmission Date: 20200714
  Serious: Yes (Other)
  Sender: FDA-Public Use
  Company Number: JP-AMGEN-JPN-20191110952

PATIENT
  Age: 75 Year
  Sex: Male

DRUGS (6)
  1. MICARDIS [Concomitant]
     Active Substance: TELMISARTAN
     Indication: HYPERTENSION
     Dosage: 20 MILLIGRAM, QD, (RESTARTED IN UNK/UNK/2019- 20 MILLIGRAM, QD)
     Route: 048
     Dates: start: 20141031, end: 20191129
  2. NAFTOPIDIL [Concomitant]
     Active Substance: NAFTOPIDIL
     Indication: DYSURIA
     Dosage: 75 MILLIGRAM, QD, (RESTARETD- 75 MILLIGRAM, QD)
     Route: 048
     Dates: start: 20190412, end: 20191129
  3. LIVALO [Concomitant]
     Active Substance: PITAVASTATIN CALCIUM
     Indication: HYPERCHOLESTEROLAEMIA
     Dosage: 1 MILLIGRAM, QD, (RESTARTED IN UNK/UNK/2019 1 MILLIGRAM, QD)
     Route: 048
     Dates: start: 20081212, end: 20191129
  4. LIVALO [Concomitant]
     Active Substance: PITAVASTATIN CALCIUM
     Indication: HYPERLIPIDAEMIA
  5. NAFTOPIDIL [Concomitant]
     Active Substance: NAFTOPIDIL
     Indication: BENIGN PROSTATIC HYPERPLASIA
  6. OTEZLA [Suspect]
     Active Substance: APREMILAST
     Indication: PSORIASIS
     Dosage: 30 MILLIGRAM, BID
     Route: 048
     Dates: start: 20190809, end: 20191129

REACTIONS (3)
  - Diarrhoea [Unknown]
  - Syncope [Recovered/Resolved]
  - Shock [Unknown]

NARRATIVE: CASE EVENT DATE: 20191128
